FAERS Safety Report 13813393 (Version 1)
Quarter: 2017Q3

REPORT INFORMATION
  Report Type: Other
  Country: US (occurrence: US)
  Receive Date: 20170731
  Receipt Date: 20170731
  Transmission Date: 20171127
  Serious: Yes (Other)
  Sender: FDA-Public Use
  Company Number: US-VELOXIS PHARMACEUTICALS-2023940

PATIENT
  Age: 51 Year
  Sex: Male

DRUGS (3)
  1. ENVARSUS XR [Suspect]
     Active Substance: TACROLIMUS
     Indication: STEM CELL TRANSPLANT
  2. BUDESONIDE. [Suspect]
     Active Substance: BUDESONIDE
  3. PREDNISONE. [Suspect]
     Active Substance: PREDNISONE

REACTIONS (4)
  - Cytomegalovirus colitis [Unknown]
  - Graft versus host disease in skin [Unknown]
  - Graft versus host disease [Unknown]
  - Product use in unapproved indication [Unknown]
